FAERS Safety Report 6846616-4 (Version None)
Quarter: 2010Q3

REPORT INFORMATION
  Report Type: 
  Country: None (occurrence: None)
  Receive Date: 20100715
  Receipt Date: 20070920
  Transmission Date: 20110219
  Serious: No
  Sender: FDA-Public Use
  Company Number: US-PFIZER INC-2007079181

PATIENT
  Sex: Male
  Weight: 121.8 kg

DRUGS (9)
  1. CHANTIX [Suspect]
     Indication: SMOKING CESSATION THERAPY
     Dates: start: 20070920
  2. VALIUM [Concomitant]
  3. RISPERDAL [Concomitant]
  4. CITALOPRAM HYDROBROMIDE [Concomitant]
  5. CELEXA [Concomitant]
  6. LITHIUM CARBONATE [Concomitant]
  7. DOXEPIN HYDROCHLORIDE [Concomitant]
  8. DIAZEPAM [Concomitant]
  9. PRILOSEC [Concomitant]

REACTIONS (1)
  - SOMNOLENCE [None]
